FAERS Safety Report 8260620-3 (Version None)
Quarter: 2012Q2

REPORT INFORMATION
  Report Type: 
  Country: None (occurrence: None)
  Receive Date: 20120404
  Receipt Date: 20120327
  Transmission Date: 20120825
  Serious: Yes (Hospitalization, Other)
  Sender: FDA-Public Use
  Company Number: US-BAXTER-2012BAX001122

PATIENT
  Sex: Male

DRUGS (2)
  1. DIANEAL [Suspect]
     Route: 033
  2. DIANEAL [Suspect]
     Indication: PERITONEAL DIALYSIS
     Route: 033

REACTIONS (5)
  - ASTHENIA [None]
  - NAUSEA [None]
  - VOMITING [None]
  - HYPOKALAEMIC SYNDROME [None]
  - BLOOD MAGNESIUM DECREASED [None]
